FAERS Safety Report 6699804-4 (Version None)
Quarter: 2010Q2

REPORT INFORMATION
  Report Type: 
  Country: None (occurrence: None)
  Receive Date: 20100428
  Receipt Date: 20090903
  Transmission Date: 20101027
  Serious: No
  Sender: FDA-Public Use
  Company Number: A0829406A

PATIENT
  Age: 67 Year
  Sex: Male
  Weight: 85 kg

DRUGS (1)
  1. LUXIQ [Suspect]
     Dosage: 0PCT TWICE PER DAY
     Route: 061
     Dates: start: 20090831, end: 20090831

REACTIONS (3)
  - ABDOMINAL DISCOMFORT [None]
  - APPLICATION SITE PAIN [None]
  - DIZZINESS [None]
